FAERS Safety Report 8571150-3 (Version None)
Quarter: 2012Q3

REPORT INFORMATION
  Report Type: 
  Country: None (occurrence: None)
  Receive Date: 20120730
  Receipt Date: 20120730
  Transmission Date: 20120928
  Serious: Yes (Hospitalization)
  Sender: FDA-Public Use
  Company Number: None

PATIENT
  Age: 10 Year
  Sex: Male
  Weight: 22.6799 kg

DRUGS (1)
  1. VIMPAT [Suspect]
     Indication: CONVULSION
     Dosage: 50 MG DAILY AM PO
     Route: 048
     Dates: start: 20120201, end: 20120701

REACTIONS (2)
  - PSYCHOTIC DISORDER [None]
  - HALLUCINATION [None]
